FAERS Safety Report 10191507 (Version 1)
Quarter: 2014Q2

REPORT INFORMATION
  Report Type: Spontaneous
  Country: US (occurrence: None)
  Receive Date: 20140522
  Receipt Date: 20140522
  Transmission Date: 20141212
  Serious: Yes (Other)
  Sender: FDA-Public Use
  Company Number: None

PATIENT
  Age: 65 Year
  Sex: Male
  Weight: 119.3 kg

DRUGS (2)
  1. HYDROCORTISONE [Suspect]
     Indication: EAR DISORDER
  2. LUMIGAN [Suspect]
     Indication: EYE DISORDER

REACTIONS (3)
  - Wrong drug administered [None]
  - Product packaging confusion [None]
  - Product label issue [None]
